FAERS Safety Report 8916579 (Version 3)
Quarter: 2013Q2

REPORT INFORMATION
  Report Type: Report from Study
  Country: JP (occurrence: JP)
  Receive Date: 20121120
  Receipt Date: 20130401
  Transmission Date: 20140414
  Serious: Yes (Other)
  Sender: FDA-Public Use
  Company Number: JP-009507513-1211JPN007760

PATIENT
  Age: 60 Year
  Sex: Female
  Weight: 58 kg

DRUGS (13)
  1. PEGINTRON [Suspect]
     Indication: CHRONIC HEPATITIS C
     Dosage: 60 MICROGRAM, QW
     Route: 058
     Dates: start: 20120912
  2. PEGINTRON [Suspect]
     Dosage: 60 MICROGRAM PER KILOGRAM, QW
     Route: 058
     Dates: end: 20121212
  3. PEGINTRON [Suspect]
     Dosage: 80 MICROGRAM PER KILOGRAM, QW
     Route: 058
     Dates: start: 20121219, end: 20130220
  4. REBETOL [Suspect]
     Indication: CHRONIC HEPATITIS C
     Dosage: 400 MG, QD
     Route: 048
     Dates: start: 20120912, end: 20121127
  5. REBETOL [Suspect]
     Dosage: 600 MG, QD
     Route: 048
     Dates: start: 20121128, end: 20130227
  6. TELAVIC [Suspect]
     Indication: CHRONIC HEPATITIS C
     Dosage: 1500 MG, QD
     Route: 048
     Dates: start: 20120912, end: 20121204
  7. PREDNISOLONE [Suspect]
     Indication: ADVERSE EVENT
     Dosage: 25 MG, QD
     Route: 048
     Dates: start: 20120915, end: 20120923
  8. PREDNISOLONE [Suspect]
     Dosage: 35 MG, QD
     Route: 048
     Dates: start: 20120924, end: 20121002
  9. PREDNISOLONE [Suspect]
     Dosage: 30 MG, QD
     Route: 048
     Dates: start: 20121003, end: 20121016
  10. PREDNISOLONE [Suspect]
     Dosage: 25 MG, QD
     Route: 048
     Dates: start: 20121017, end: 20121204
  11. PREDNISOLONE [Suspect]
     Dosage: 15 MG, QD
     Route: 048
     Dates: start: 20121205, end: 20121218
  12. PREDNISOLONE [Suspect]
     Dosage: 10 MG, QD
     Route: 048
     Dates: start: 20121219, end: 20121225
  13. PREDNISOLONE [Suspect]
     Dosage: 5 MG, QD
     Route: 048
     Dates: start: 20121226, end: 20130109

REACTIONS (1)
  - Toxic skin eruption [Not Recovered/Not Resolved]
